FAERS Safety Report 13054784 (Version 1)
Quarter: 2016Q4

REPORT INFORMATION
  Report Type: Spontaneous
  Country: US (occurrence: US)
  Receive Date: 20161222
  Receipt Date: 20161222
  Transmission Date: 20170207
  Serious: Yes (Other)
  Sender: FDA-Public Use
  Company Number: US-PFIZER INC-2016578881

PATIENT
  Sex: Female

DRUGS (2)
  1. FLUDARABINE PHOSPHATE. [Suspect]
     Active Substance: FLUDARABINE PHOSPHATE
     Dosage: UNK
     Dates: start: 201610
  2. CYTARABINE. [Suspect]
     Active Substance: CYTARABINE
     Dosage: UNK
     Dates: start: 201610

REACTIONS (6)
  - Electrocardiogram QT prolonged [Unknown]
  - Bone marrow failure [Unknown]
  - Cellulitis [Unknown]
  - Nausea [Unknown]
  - Pulmonary mycosis [Unknown]
  - Vomiting [Unknown]
